FAERS Safety Report 22859359 (Version 3)
Quarter: 2023Q4

REPORT INFORMATION
  Report Type: Spontaneous
  Country: DE (occurrence: DE)
  Receive Date: 20230824
  Receipt Date: 20231212
  Transmission Date: 20240110
  Serious: Yes (Other)
  Sender: FDA-Public Use
  Company Number: DE-EMBRYOTOX-202207858

PATIENT
  Sex: Female
  Weight: 66 kg

DRUGS (5)
  1. ARIPIPRAZOLE [Suspect]
     Active Substance: ARIPIPRAZOLE
     Indication: Depression
     Dosage: 15 MILLIGRAM, ONCE A DAY,15 [MG/D ]
     Route: 048
     Dates: start: 20211030, end: 20220803
  2. VENLAFAXINE [Concomitant]
     Active Substance: VENLAFAXINE HYDROCHLORIDE
     Indication: Depression
     Dosage: 300 MILLIGRAM, ONCE A DAY, 300 [MG/D (BIS 187.5) ]
     Route: 048
     Dates: start: 20211030, end: 20220803
  3. INSULIN NOS [Concomitant]
     Active Substance: INSULIN NOS
     Indication: Gestational diabetes
     Dosage: UNK, 14 [IE/D (BIS 0-0-12) ]/ 12-14 IU/D
     Route: 058
  4. FOLIC ACID [Concomitant]
     Active Substance: FOLIC ACID
     Indication: Prophylaxis of neural tube defect
     Dosage: UNK, + PRECONCEPTIONAL, AT LEAST UNTIL GW 36+5
     Route: 048
     Dates: start: 20211030, end: 20220714
  5. REPEVAX [Concomitant]
     Active Substance: DIPHTHERIA AND TETANUS TOXOIDS AND ACELLULAR PERTUSSIS ADSORBED AND INACTIVATED POLIOVIRUS VACCINE
     Indication: Immunisation
     Dosage: UNK
     Route: 030
     Dates: start: 20220524, end: 20220524

REACTIONS (2)
  - Gestational diabetes [Unknown]
  - Exposure during pregnancy [Unknown]
